FAERS Safety Report 7468353-8 (Version None)
Quarter: 2011Q2

REPORT INFORMATION
  Report Type: 
  Country: None (occurrence: None)
  Receive Date: 20110509
  Receipt Date: 20090210
  Transmission Date: 20111010
  Serious: Yes (Death, Other)
  Sender: FDA-Public Use
  Company Number: US-BAYER-200913182NA

PATIENT
  Sex: Female
  Weight: 51.02 kg

DRUGS (14)
  1. TRASYLOL [Suspect]
     Indication: MITRAL VALVE REPAIR
     Dosage: 100 ML, LOADING DOSE
     Dates: start: 20060926, end: 20060926
  2. MORPHINE [Concomitant]
     Dosage: 4 MGS
     Route: 042
     Dates: start: 20060926, end: 20060926
  3. RED BLOOD CELLS, CONCENTRATED [Concomitant]
     Dosage: 3 UNITS
     Route: 042
     Dates: start: 20060926
  4. AMIODARONE [Concomitant]
     Dosage: LONG TERM
     Route: 048
  5. TRASYLOL [Suspect]
     Indication: CORONARY ARTERY BYPASS
     Dosage: 1 ML, TEST DOSE
     Route: 042
     Dates: start: 20060926, end: 20060926
  6. NIMBEX [Concomitant]
     Dosage: 4 CCS/HR/10 CCS
     Route: 042
     Dates: start: 20060926, end: 20060926
  7. ESMOLOL [Concomitant]
     Dosage: UNK
     Route: 042
     Dates: start: 20060926, end: 20060926
  8. BENAZEPRIL HYDROCHLORIDE [Concomitant]
     Dosage: 10MG
     Route: 048
  9. CARTIA XT [Concomitant]
     Dosage: 240MG
     Route: 048
  10. LASIX [Concomitant]
     Route: 048
  11. HYDROCHLOROTHIAZIDE [Concomitant]
     Dosage: 122.5MG
     Route: 048
  12. ZINACEF [Concomitant]
     Dosage: 3 GRAMS
     Route: 042
     Dates: start: 20060926, end: 20060926
  13. INSULIN [INSULIN] [Concomitant]
     Dosage: 20 UNITS
     Route: 042
     Dates: start: 20060926, end: 20060926
  14. ZOCOR [Concomitant]
     Dosage: 40MG
     Route: 048

REACTIONS (8)
  - RENAL IMPAIRMENT [None]
  - RENAL FAILURE ACUTE [None]
  - INJURY [None]
  - ANXIETY [None]
  - RENAL FAILURE [None]
  - EMOTIONAL DISTRESS [None]
  - RENAL FAILURE CHRONIC [None]
  - RENAL INJURY [None]
